FAERS Safety Report 8558946-9 (Version None)
Quarter: 2012Q3

REPORT INFORMATION
  Report Type: 
  Country: None (occurrence: None)
  Receive Date: 20120802
  Receipt Date: 20120723
  Transmission Date: 20120928
  Serious: Yes (Hospitalization)
  Sender: FDA-Public Use
  Company Number: US-009507513-1207USA009816

PATIENT

DRUGS (5)
  1. DICLOFENAC SODIUM [Suspect]
     Route: 048
  2. CINNARIZINE [Concomitant]
  3. ZOCOR [Suspect]
     Route: 048
  4. SILDENAFIL CITRATE [Concomitant]
  5. GLUCOSAMINE [Concomitant]

REACTIONS (2)
  - RENAL INJURY [None]
  - MYOPATHY [None]
